FAERS Safety Report 6454685-9 (Version None)
Quarter: 2009Q4

REPORT INFORMATION
  Report Type: 
  Country: None (occurrence: None)
  Receive Date: 20091118
  Receipt Date: 20091105
  Transmission Date: 20100525
  Serious: Yes (Hospitalization)
  Sender: FDA-Public Use
  Company Number: 2009EU004229

PATIENT
  Age: 47 Year
  Sex: Male

DRUGS (4)
  1. PROGRAF [Suspect]
     Indication: LUNG TRANSPLANT
     Dosage: ORAL
     Route: 048
  2. CODEINE SUL TAB [Suspect]
     Indication: COUGH
     Dosage: 50 MG, TID, ORAL
     Route: 048
     Dates: start: 20090702, end: 20090712
  3. RHINOVENT (IPRATROPIUM BROMIDE) [Concomitant]
  4. FLUTICASONE PROPIONATE [Concomitant]

REACTIONS (7)
  - ALANINE AMINOTRANSFERASE INCREASED [None]
  - ASPARTATE AMINOTRANSFERASE INCREASED [None]
  - DRUG INTERACTION [None]
  - DRUG LEVEL INCREASED [None]
  - GAMMA-GLUTAMYLTRANSFERASE INCREASED [None]
  - MALAISE [None]
  - NAUSEA [None]
